FAERS Safety Report 9659489 (Version 3)
Quarter: 2013Q4

REPORT INFORMATION
  Report Type: Spontaneous
  Country: NO (occurrence: NO)
  Receive Date: 20131031
  Receipt Date: 20131107
  Transmission Date: 20140711
  Serious: Yes (Hospitalization)
  Sender: FDA-Public Use
  Company Number: PHHY2013NO096919

PATIENT
  Sex: Female

DRUGS (2)
  1. RITALIN [Suspect]
     Indication: ATTENTION DEFICIT/HYPERACTIVITY DISORDER
     Dosage: 02 DF, UNK
     Dates: start: 201205
  2. TREO [Concomitant]
     Indication: PAIN
     Dosage: 01 DF, DAILY

REACTIONS (10)
  - Musculoskeletal pain [Recovering/Resolving]
  - Ear swelling [Recovering/Resolving]
  - Chest discomfort [Recovering/Resolving]
  - Migraine [Unknown]
  - Nausea [Recovering/Resolving]
  - Vomiting [Recovering/Resolving]
  - Headache [Recovering/Resolving]
  - Visual impairment [Recovering/Resolving]
  - Vision blurred [Recovering/Resolving]
  - Neck pain [Recovering/Resolving]
